FAERS Safety Report 4370303-8 (Version None)
Quarter: 2004Q2

REPORT INFORMATION
  Report Type: 
  Country: None (occurrence: None)
  Receive Date: 20040603
  Receipt Date: 20040304
  Transmission Date: 20050107
  Serious: Yes (Hospitalization)
  Sender: FDA-Public Use
  Company Number: US-BRISTOL-MYERS SQUIBB COMPANY-12526133

PATIENT
  Sex: Male

DRUGS (6)
  1. ABILIFY [Suspect]
     Indication: BIPOLAR DISORDER
     Route: 048
  2. DEPAKOTE [Concomitant]
  3. CONCERTA [Concomitant]
  4. TENEX [Concomitant]
  5. SEROQUEL [Concomitant]
  6. ZANTAC [Concomitant]

REACTIONS (1)
  - DYSTONIA [None]
